FAERS Safety Report 8108709-3 (Version None)
Quarter: 2012Q1

REPORT INFORMATION
  Report Type: 
  Country: None (occurrence: None)
  Receive Date: 20120202
  Receipt Date: 20120103
  Transmission Date: 20120608
  Serious: No
  Sender: FDA-Public Use
  Company Number: US-AMGEN-USASP2011056711

PATIENT
  Age: 61 Year
  Sex: Female

DRUGS (1)
  1. ENBREL [Suspect]
     Indication: RHEUMATOID ARTHRITIS
     Dosage: 50 MG, QWK
     Route: 058
     Dates: start: 20111001

REACTIONS (9)
  - MUSCLE TIGHTNESS [None]
  - PAIN IN EXTREMITY [None]
  - CHILLS [None]
  - NAUSEA [None]
  - ARTHRALGIA [None]
  - BACK PAIN [None]
  - RHINORRHOEA [None]
  - PRODUCTIVE COUGH [None]
  - HYPERHIDROSIS [None]
